FAERS Safety Report 7269893-7 (Version None)
Quarter: 2011Q1

REPORT INFORMATION
  Report Type: 
  Country: None (occurrence: None)
  Receive Date: 20110125
  Receipt Date: 20110118
  Transmission Date: 20110831
  Serious: Yes (Death, Life-Threatening, Other)
  Sender: FDA-Public Use
  Company Number: WAES 1010USA00085

PATIENT
  Age: 68 Year
  Sex: Female

DRUGS (15)
  1. ASPIRIN [Concomitant]
  2. BICARBONATE [Concomitant]
  3. KLACID [Concomitant]
  4. PLAVIX [Concomitant]
  5. DOUTAMINE [Concomitant]
  6. LASIX [Concomitant]
  7. NAC DIAGNOSTIC REAGENT [Concomitant]
  8. PULMICORT [Concomitant]
  9. INSULIN [Concomitant]
  10. VYTORIN [Suspect]
     Indication: ACUTE CORONARY SYNDROME
     Dosage: 10-40 MG/DAILY
     Route: 048
     Dates: start: 20100702, end: 20100725
  11. ROCEPHIN [Concomitant]
  12. DOPAMINE HCL [Concomitant]
  13. EPINEPHRINE [Concomitant]
  14. PLACEBO [Suspect]
     Indication: ACUTE CORONARY SYNDROME
     Route: 048
     Dates: start: 20100702, end: 20100725
  15. COMBIVENT [Concomitant]

REACTIONS (3)
  - HEART RATE DECREASED [None]
  - RESPIRATORY ARREST [None]
  - RHABDOMYOLYSIS [None]
